FAERS Safety Report 8281864-0 (Version None)
Quarter: 2012Q2

REPORT INFORMATION
  Report Type: 
  Country: None (occurrence: None)
  Receive Date: 20120413
  Receipt Date: 20120410
  Transmission Date: 20120825
  Serious: Yes (Hospitalization)
  Sender: FDA-Public Use
  Company Number: PHHY2012AU027566

PATIENT
  Sex: Male

DRUGS (2)
  1. CLOZARIL [Suspect]
     Indication: SCHIZOPHRENIA
     Dosage: 600 MG
     Route: 048
     Dates: start: 19960811
  2. CLOZAPINE [Concomitant]

REACTIONS (4)
  - PNEUMONIA [None]
  - AGGRESSION [None]
  - DELIRIUM [None]
  - TREATMENT NONCOMPLIANCE [None]
